FAERS Safety Report 5060125-7 (Version None)
Quarter: 2006Q3

REPORT INFORMATION
  Report Type: 
  Country: None (occurrence: None)
  Receive Date: 20060719
  Receipt Date: 20060706
  Transmission Date: 20061208
  Serious: Yes (Hospitalization, Other)
  Sender: FDA-Public Use
  Company Number: 6024125

PATIENT
  Age: 70 Year
  Sex: Male

DRUGS (1)
  1. LODOZ (TABLET) (HYDROCHLOROTHIAZIDE, BISOPROLOL FUMARATE) [Suspect]
     Dosage: ORAL  FOR A FEW MONTHS
     Route: 048

REACTIONS (1)
  - EOSINOPHILIC PNEUMONIA [None]
